FAERS Safety Report 6724747-7 (Version None)
Quarter: 2010Q2

REPORT INFORMATION
  Report Type: 
  Country: None (occurrence: None)
  Receive Date: 20100511
  Receipt Date: 20100503
  Transmission Date: 20101027
  Serious: Yes (Death)
  Sender: FDA-Public Use
  Company Number: AXC-2010-000122

PATIENT
  Sex: Male

DRUGS (3)
  1. PHOTOFRIN [Suspect]
     Indication: BILE DUCT CANCER
     Dates: start: 20090501, end: 20090501
  2. PHOTOFRIN [Suspect]
     Indication: BILE DUCT CANCER
     Dates: start: 20091001, end: 20091001
  3. PHOTOFRIN [Suspect]
     Indication: BILE DUCT CANCER
     Dates: start: 20090801

REACTIONS (1)
  - DEATH [None]
